FAERS Safety Report 6434091-3 (Version None)
Quarter: 2009Q4

REPORT INFORMATION
  Report Type: 
  Country: None (occurrence: None)
  Receive Date: 20091110
  Receipt Date: 20090803
  Transmission Date: 20100525
  Serious: No
  Sender: FDA-Public Use
  Company Number: US-ASTRAZENECA-2009SE12734

PATIENT
  Age: 9 Year
  Sex: Male

DRUGS (1)
  1. PRILOSEC OTC [Suspect]
     Indication: GASTROOESOPHAGEAL REFLUX DISEASE
     Dosage: 1 TABLET, 1 ONLY
     Route: 048
     Dates: start: 20090803, end: 20090803

REACTIONS (4)
  - FATIGUE [None]
  - INCREASED APPETITE [None]
  - LETHARGY [None]
  - TREMOR [None]
